FAERS Safety Report 21659055 (Version 1)
Quarter: 2022Q4

REPORT INFORMATION
  Report Type: Report from Study
  Country: US (occurrence: US)
  Receive Date: 20221129
  Receipt Date: 20221129
  Transmission Date: 20230112
  Serious: No
  Sender: FDA-Public Use
  Company Number: US-ABBVIE-4166253

PATIENT
  Age: 68 Year
  Sex: Male

DRUGS (5)
  1. HUMIRA [Suspect]
     Active Substance: ADALIMUMAB
     Indication: Crohn^s disease
     Route: 058
  2. Pfizer/BioNTech [Concomitant]
     Indication: COVID-19 immunisation
     Dosage: FIRST DOSE?ONE IN ONCE
     Route: 030
     Dates: start: 20210227, end: 20210227
  3. Pfizer/BioNTech [Concomitant]
     Indication: COVID-19 immunisation
     Dosage: SECOND DOSE?ONE IN ONCE
     Route: 030
     Dates: start: 20210320, end: 20210320
  4. Pfizer/BioNTech [Concomitant]
     Indication: COVID-19 immunisation
     Dosage: 3RD DOSE?ONE IN ONCE
     Route: 030
     Dates: start: 20211002, end: 20211002
  5. MODERNA COVID-19 VACCINE [Concomitant]
     Active Substance: ELASOMERAN
     Indication: COVID-19 immunisation
     Dosage: 2ND BOOSTER SHOT?ONE IN ONCE.
     Route: 030
     Dates: start: 20220806, end: 20220806

REACTIONS (2)
  - Injection site nodule [Unknown]
  - Injection site swelling [Unknown]

NARRATIVE: CASE EVENT DATE: 20221012
